FAERS Safety Report 8241023-4 (Version None)
Quarter: 2012Q1

REPORT INFORMATION
  Report Type: 
  Country: None (occurrence: None)
  Receive Date: 20120328
  Receipt Date: 20120319
  Transmission Date: 20120608
  Serious: Yes (Hospitalization, Other)
  Sender: FDA-Public Use
  Company Number: US-MERCK-1109USA02136

PATIENT
  Age: 61 Year
  Sex: Female
  Weight: 63 kg

DRUGS (4)
  1. FOSAMAX [Suspect]
     Indication: OSTEOPOROSIS
     Route: 048
     Dates: start: 19990201, end: 20110501
  2. FOSAMAX [Suspect]
     Route: 048
     Dates: start: 19991101
  3. ALENDRONATE SODIUM [Suspect]
     Indication: OSTEOPOROSIS
     Route: 048
     Dates: start: 20091019, end: 20110501
  4. FOSAMAX PLUS D [Suspect]
     Indication: OSTEOPOROSIS
     Route: 048

REACTIONS (70)
  - ATELECTASIS [None]
  - FALL [None]
  - IRON DEFICIENCY ANAEMIA [None]
  - LUNG INFILTRATION [None]
  - INTERVERTEBRAL DISC DEGENERATION [None]
  - CONFUSIONAL STATE [None]
  - VISUAL FIELD DEFECT [None]
  - UTERINE CERVIX STENOSIS [None]
  - RHINITIS ALLERGIC [None]
  - HALLUCINATION [None]
  - BLOOD PRESSURE INCREASED [None]
  - ARTHRITIS [None]
  - ENDOMETRIAL CANCER [None]
  - DYSPNOEA EXERTIONAL [None]
  - LEUKOCYTOSIS [None]
  - ADVERSE DRUG REACTION [None]
  - BRONCHITIS [None]
  - CARPAL TUNNEL SYNDROME [None]
  - COUGH [None]
  - BLOOD CHOLESTEROL INCREASED [None]
  - TOOTH DISORDER [None]
  - LUMBAR VERTEBRAL FRACTURE [None]
  - HEARING IMPAIRED [None]
  - ANXIETY [None]
  - HIP FRACTURE [None]
  - OSTEOARTHRITIS [None]
  - VAGINAL DISORDER [None]
  - SLEEP DISORDER [None]
  - HAEMORRHOIDS [None]
  - LOCALISED INFECTION [None]
  - HYPERCHOLESTEROLAEMIA [None]
  - HIATUS HERNIA [None]
  - BURSITIS [None]
  - ASTHMA [None]
  - URINARY TRACT INFECTION [None]
  - INTESTINAL OBSTRUCTION [None]
  - POLYNEUROPATHY [None]
  - OSTEITIS [None]
  - NAIL DYSTROPHY [None]
  - MYALGIA [None]
  - TEMPOROMANDIBULAR JOINT SYNDROME [None]
  - ARTHRALGIA [None]
  - CATARACT [None]
  - EUSTACHIAN TUBE DYSFUNCTION [None]
  - ALLERGY TO ARTHROPOD STING [None]
  - CARDIOMEGALY [None]
  - CONDUCTIVE DEAFNESS [None]
  - SMALL INTESTINAL OBSTRUCTION [None]
  - EAR PAIN [None]
  - LUNG NEOPLASM [None]
  - EXCESSIVE SKIN [None]
  - MACULAR FIBROSIS [None]
  - UTERINE CANCER [None]
  - CERVICAL POLYP [None]
  - VITREOUS DETACHMENT [None]
  - FOOT DEFORMITY [None]
  - EOSINOPHILIA [None]
  - FEMUR FRACTURE [None]
  - DEHYDRATION [None]
  - AGE-RELATED MACULAR DEGENERATION [None]
  - SPINAL OSTEOARTHRITIS [None]
  - PAIN IN EXTREMITY [None]
  - MENISCUS LESION [None]
  - BRONCHIAL HYPERREACTIVITY [None]
  - PERIARTHRITIS [None]
  - PANCYTOPENIA [None]
  - FATIGUE [None]
  - NASAL POLYPS [None]
  - PRIMARY CILIARY DYSKINESIA [None]
  - ILIOTIBIAL BAND SYNDROME [None]
